FAERS Safety Report 7184169-4 (Version None)
Quarter: 2010Q4

REPORT INFORMATION
  Report Type: 
  Country: None (occurrence: None)
  Receive Date: 20101222
  Receipt Date: 20101216
  Transmission Date: 20110411
  Serious: Yes (Hospitalization)
  Sender: FDA-Public Use
  Company Number: FR-CEPHALON-2010006485

PATIENT
  Age: 48 Year
  Sex: Female

DRUGS (1)
  1. MODAFINIL [Suspect]
     Route: 048
     Dates: start: 20080101

REACTIONS (1)
  - MULTIPLE SCLEROSIS [None]
